FAERS Safety Report 10446178 (Version 6)
Quarter: 2015Q1

REPORT INFORMATION
  Report Type: Report from Study
  Country: US (occurrence: US)
  Receive Date: 20140911
  Receipt Date: 20150317
  Transmission Date: 20150720
  Serious: Yes (Hospitalization)
  Sender: FDA-Public Use
  Company Number: US-AMGEN-USACT2014068211

PATIENT
  Age: 68 Year
  Sex: Female
  Weight: 47.2 kg

DRUGS (4)
  1. TRAMETINIB [Concomitant]
     Active Substance: TRAMETINIB
     Indication: COLORECTAL CANCER
     Dosage: 4 MG, QD
     Route: 048
     Dates: start: 20140602, end: 20140602
  2. PANITUMUMAB [Suspect]
     Active Substance: PANITUMUMAB
     Indication: COLORECTAL CANCER
     Dosage: 6 MG/KG, CYC
     Route: 042
     Dates: start: 20140602
  3. DABRAFENIB [Concomitant]
     Active Substance: DABRAFENIB
     Indication: COLORECTAL CANCER
     Dosage: 150 MG, BID
     Route: 048
     Dates: start: 20140602
  4. TRAMETINIB [Concomitant]
     Active Substance: TRAMETINIB
     Dosage: 2 MG, QD
     Dates: start: 20140604

REACTIONS (1)
  - Peripheral artery thrombosis [Recovered/Resolved]

NARRATIVE: CASE EVENT DATE: 20140901
